FAERS Safety Report 6415547-6 (Version None)
Quarter: 2009Q4

REPORT INFORMATION
  Report Type: 
  Country: None (occurrence: None)
  Receive Date: 20091027
  Receipt Date: 20090928
  Transmission Date: 20100525
  Serious: No
  Sender: FDA-Public Use
  Company Number: US-BAYER-200915032BCC

PATIENT
  Age: 73 Year
  Sex: Male
  Weight: 82 kg

DRUGS (4)
  1. ALEVE [Suspect]
     Indication: BACK PAIN
     Dosage: TOTAL DAILY DOSE: 220 MG  UNIT DOSE: 220 MG
     Route: 048
  2. ALEVE [Suspect]
     Dosage: TOTAL DAILY DOSE: 220 MG  UNIT DOSE: 220 MG
     Route: 048
     Dates: start: 20090925, end: 20090926
  3. MICARDIS [Concomitant]
     Route: 065
  4. PREVACID [Concomitant]
     Route: 065

REACTIONS (1)
  - URTICARIA [None]
